FAERS Safety Report 15363244 (Version 1)
Quarter: 2018Q3

REPORT INFORMATION
  Report Type: Report from Study
  Country: FI (occurrence: FI)
  Receive Date: 20180907
  Receipt Date: 20180907
  Transmission Date: 20181010
  Serious: Yes (Hospitalization, Other)
  Sender: FDA-Public Use
  Company Number: FI-MYLANLABS-2018M1065660

PATIENT
  Age: 43 Year
  Sex: Male

DRUGS (2)
  1. LEPONEX [Suspect]
     Active Substance: CLOZAPINE
     Indication: PRODUCT USED FOR UNKNOWN INDICATION
     Dosage: 500 MG, QD
  2. LEPONEX [Suspect]
     Active Substance: CLOZAPINE
     Dosage: 15 G, UNK
     Dates: start: 2018

REACTIONS (5)
  - Blood creatine phosphokinase increased [Recovering/Resolving]
  - Unresponsive to stimuli [Unknown]
  - Overdose [Unknown]
  - Pneumonia aspiration [Unknown]
  - Neuroleptic malignant syndrome [Unknown]

NARRATIVE: CASE EVENT DATE: 2018
